FAERS Safety Report 6416874-9 (Version None)
Quarter: 2009Q4

REPORT INFORMATION
  Report Type: 
  Country: None (occurrence: None)
  Receive Date: 20091023
  Receipt Date: 20091013
  Transmission Date: 20100525
  Serious: Yes (Hospitalization, Other)
  Sender: FDA-Public Use
  Company Number: ADR43052009

PATIENT
  Age: 47 Year
  Sex: Female

DRUGS (7)
  1. SERTRALINE HCL [Suspect]
     Indication: DEPRESSION
     Dosage: ORAL
     Route: 048
  2. CLOZARIL [Concomitant]
  3. CLONAZEPAM [Concomitant]
  4. DEPAKOTE [Concomitant]
  5. LAMOTRIGINE [Concomitant]
  6. QUETIAPINE [Concomitant]
  7. SERETIDE [Concomitant]

REACTIONS (7)
  - BODY TEMPERATURE INCREASED [None]
  - CARDIOMYOPATHY [None]
  - LOWER RESPIRATORY TRACT INFECTION [None]
  - MONOCYTE COUNT INCREASED [None]
  - OXYGEN SATURATION DECREASED [None]
  - TACHYCARDIA [None]
  - TACHYPNOEA [None]
